FAERS Safety Report 10985853 (Version 1)
Quarter: 2015Q1

REPORT INFORMATION
  Report Type: Spontaneous
  Country: US (occurrence: None)
  Receive Date: 20150324
  Receipt Date: 20150324
  Transmission Date: 20150721
  Serious: Yes (Other)
  Sender: FDA-Public Use
  Company Number: 2014STPI000283

PATIENT
  Age: 13 Year
  Sex: Female
  Weight: 50.3 kg

DRUGS (4)
  1. VICRISTINE SULFATE [Concomitant]
  2. ONCASPAR [Suspect]
     Active Substance: PEGASPARGASE
     Indication: ACUTE LYMPHOCYTIC LEUKAEMIA
     Route: 042
     Dates: start: 20131111, end: 20131111
  3. ZOFRAN (ONDANSETRON HYDROCHLORIDE) [Concomitant]
  4. METHOTREXATE SODIUM. [Concomitant]
     Active Substance: METHOTREXATE SODIUM

REACTIONS (1)
  - Hypersensitivity [None]

NARRATIVE: CASE EVENT DATE: 20131230
